FAERS Safety Report 18615514 (Version 1)
Quarter: 2020Q4

REPORT INFORMATION
  Report Type: Spontaneous
  Country: FR (occurrence: FR)
  Receive Date: 20201215
  Receipt Date: 20201215
  Transmission Date: 20210114
  Serious: Yes (Hospitalization)
  Sender: FDA-Public Use
  Company Number: FR-AXELLIA-003566

PATIENT
  Age: 53 Year
  Sex: Male

DRUGS (10)
  1. DAPTOMYCIN. [Suspect]
     Active Substance: DAPTOMYCIN
     Indication: MEDIASTINITIS
     Route: 042
     Dates: start: 20201116, end: 20201127
  2. ONDANSETRON [Concomitant]
     Active Substance: ONDANSETRON
     Indication: PROPHYLAXIS OF NAUSEA AND VOMITING
     Route: 048
     Dates: start: 20201101
  3. AMLODIPINE [Concomitant]
     Active Substance: AMLODIPINE BESYLATE
     Indication: HYPERTENSION
     Route: 048
     Dates: start: 202011
  4. ACTISKENAN [Concomitant]
     Active Substance: MORPHINE SULFATE
     Indication: PAIN
     Dosage: STRENGTH-5 MG
     Route: 048
     Dates: start: 20201101
  5. PANTOPRAZOLE [Concomitant]
     Active Substance: PANTOPRAZOLE
     Indication: GASTRITIS PROPHYLAXIS
     Route: 048
     Dates: start: 20201101
  6. IPRATROPIUM [Concomitant]
     Active Substance: IPRATROPIUM
     Indication: DYSPNOEA
     Route: 055
     Dates: start: 20201122
  7. PARACETAMOL [Concomitant]
     Active Substance: ACETAMINOPHEN
     Indication: PAIN
     Route: 048
     Dates: start: 202011
  8. EPINITRIL [Concomitant]
     Active Substance: NITROGLYCERIN
     Indication: ARTERIAL BYPASS OPERATION
     Dosage: STRENGTH- 5 MG/24 HOURS
     Route: 003
     Dates: start: 20201103
  9. SKENAN [Concomitant]
     Active Substance: MORPHINE SULFATE
     Indication: PAIN
     Dosage: STRENGTH- 10 MG, MICROGRANULES PROLONGED-RELEASE CAPSULE
     Route: 048
     Dates: start: 20201105
  10. AUGMENTIN [Concomitant]
     Active Substance: AMOXICILLIN\CLAVULANATE POTASSIUM
     Indication: MEDIASTINITIS
     Route: 042
     Dates: start: 20201113, end: 20201116

REACTIONS (3)
  - Eosinophilic pneumonia [Recovering/Resolving]
  - Lung disorder [Recovering/Resolving]
  - Eosinophilia [Recovered/Resolved]

NARRATIVE: CASE EVENT DATE: 20201119
